FAERS Safety Report 12074558 (Version 1)
Quarter: 2016Q1

REPORT INFORMATION
  Report Type: Spontaneous
  Country: US (occurrence: US)
  Receive Date: 20160212
  Receipt Date: 20160212
  Transmission Date: 20160526
  Serious: No
  Sender: FDA-Public Use
  Company Number: US-LANTHEUS-LMI-2015-00112

PATIENT
  Age: 40 Year
  Sex: Male

DRUGS (1)
  1. ABLAVAR [Suspect]
     Active Substance: GADOFOSVESET TRISODIUM
     Indication: ANGIOGRAM
     Dosage: UNDILUTED, PUSHED WITH SALINE, 1 ML PER SECOND
     Dates: start: 20141108, end: 20141108

REACTIONS (1)
  - Burning sensation [Unknown]

NARRATIVE: CASE EVENT DATE: 20141108
